FAERS Safety Report 5745893-0 (Version None)
Quarter: 2008Q2

REPORT INFORMATION
  Report Type: 
  Country: None (occurrence: None)
  Receive Date: 20080521
  Receipt Date: 20080519
  Transmission Date: 20081010
  Serious: Yes (Other)
  Sender: FDA-Public Use
  Company Number: JP-GENENTECH-261255

PATIENT
  Age: 70 Year
  Sex: Male

DRUGS (1)
  1. ACTIVASE [Suspect]
     Indication: CEREBRAL ISCHAEMIA
     Dosage: 33 MG, UNK
     Route: 042
     Dates: start: 20080115

REACTIONS (1)
  - HAND FRACTURE [None]
